FAERS Safety Report 24351068 (Version 1)
Quarter: 2024Q3

REPORT INFORMATION
  Report Type: Spontaneous
  Country: US (occurrence: None)
  Receive Date: 20240920
  Receipt Date: 20240920
  Transmission Date: 20241017
  Serious: Yes (Disabling)
  Sender: Public
  Company Number: None

PATIENT
  Age: 69 Year
  Sex: Female
  Weight: 83.25 kg

DRUGS (8)
  1. SUNOSI [Suspect]
     Active Substance: SOLRIAMFETOL
     Indication: Sleep apnoea syndrome
     Dosage: 1 TABLET ORAL ?
     Route: 048
     Dates: start: 20240830, end: 20240830
  2. SUNOSI [Suspect]
     Active Substance: SOLRIAMFETOL
     Indication: Attention deficit hyperactivity disorder
  3. VENTOLIN [Concomitant]
     Active Substance: ALBUTEROL SULFATE
  4. MULTI-VITAMIN [Concomitant]
     Active Substance: .ALPHA.-TOCOPHEROL ACETATE, DL-\ASCORBIC ACID\CYANOCOBALAMIN\FLUORIDE ION\FOLIC ACID\NIACIN\PYRIDOXI
  5. IRON [Concomitant]
     Active Substance: IRON
  6. VITAMINS D3 [Concomitant]
  7. VITAMIN B6 [Concomitant]
     Active Substance: PYRIDOXINE HYDROCHLORIDE
  8. aspirin [Concomitant]

REACTIONS (4)
  - Lethargy [None]
  - Agitation [None]
  - Asthenia [None]
  - Abdominal pain upper [None]

NARRATIVE: CASE EVENT DATE: 20240830
